FAERS Safety Report 13027326 (Version 7)
Quarter: 2017Q3

REPORT INFORMATION
  Report Type: Spontaneous
  Country: PR (occurrence: PR)
  Receive Date: 20161214
  Receipt Date: 20170705
  Transmission Date: 20171127
  Serious: No
  Sender: FDA-Public Use
  Company Number: PR-PFIZER INC-2016571101

PATIENT
  Age: 42 Year
  Sex: Male
  Weight: 123.36 kg

DRUGS (12)
  1. SUTENT [Suspect]
     Active Substance: SUNITINIB MALATE
     Dosage: 50 MG, CYCLIC (28 DAYS ON/14 DAYS OFF)
     Dates: start: 20161201
  2. WELLBUTRIN [Concomitant]
     Active Substance: BUPROPION HYDROCHLORIDE
     Dosage: UNK
  3. SUTENT [Suspect]
     Active Substance: SUNITINIB MALATE
     Indication: RENAL CANCER STAGE IV
     Dosage: 50 MG, CYCLIC (DAILY X 28 DAYS, 2 WEEKS REST)
     Route: 048
     Dates: start: 20161130
  4. PRILOSEC [Concomitant]
     Active Substance: OMEPRAZOLE MAGNESIUM
     Dosage: UNK
  5. ZANTAC [Concomitant]
     Active Substance: RANITIDINE HYDROCHLORIDE
     Dosage: UNK
  6. GABAPENTIN. [Concomitant]
     Active Substance: GABAPENTIN
     Dosage: UNK
  7. SUTENT [Suspect]
     Active Substance: SUNITINIB MALATE
     Dosage: 50 MG, DAILY
     Route: 048
     Dates: start: 20161130
  8. AMBIEN [Concomitant]
     Active Substance: ZOLPIDEM TARTRATE
     Dosage: UNK
  9. SUTENT [Suspect]
     Active Substance: SUNITINIB MALATE
     Dosage: 50 MG, DAILY
     Route: 048
     Dates: start: 20161130
  10. OXYCODONE [Concomitant]
     Active Substance: OXYCODONE
     Dosage: UNK
  11. KLONOPIN [Concomitant]
     Active Substance: CLONAZEPAM
     Dosage: UNK
  12. LAMICTAL [Concomitant]
     Active Substance: LAMOTRIGINE
     Dosage: UNK

REACTIONS (7)
  - Asthenia [Unknown]
  - Abdominal discomfort [Unknown]
  - Hypertension [Unknown]
  - Headache [Recovered/Resolved]
  - Neoplasm progression [Unknown]
  - Fatigue [Recovered/Resolved]
  - Abdominal pain [Unknown]

NARRATIVE: CASE EVENT DATE: 20170515
